FAERS Safety Report 6491245-8 (Version None)
Quarter: 2009Q4

REPORT INFORMATION
  Report Type: 
  Country: None (occurrence: None)
  Receive Date: 20091211
  Receipt Date: 20091202
  Transmission Date: 20100525
  Serious: Yes (Hospitalization)
  Sender: FDA-Public Use
  Company Number: PHHY2009DE53437

PATIENT
  Age: 66 Year
  Sex: Female

DRUGS (3)
  1. DICLOFENAC [Suspect]
     Indication: BACK PAIN
     Dosage: SINCE 10 YEARS
     Route: 030
  2. LAMPRENE [Interacting]
     Indication: SYSTEMIC LUPUS ERYTHEMATOSUS
  3. CORTISONE [Concomitant]
     Indication: SYSTEMIC LUPUS ERYTHEMATOSUS

REACTIONS (2)
  - DRUG INTERACTION [None]
  - SHOCK [None]
